FAERS Safety Report 7309002-9 (Version None)
Quarter: 2011Q1

REPORT INFORMATION
  Report Type: 
  Country: None (occurrence: None)
  Receive Date: 20110223
  Receipt Date: 20110207
  Transmission Date: 20110831
  Serious: Yes (Hospitalization, Other)
  Sender: FDA-Public Use
  Company Number: US-BAYER-201026783NA

PATIENT
  Sex: Female
  Weight: 63.492 kg

DRUGS (5)
  1. YAZ [Suspect]
     Indication: PRODUCT USED FOR UNKNOWN INDICATION
     Route: 048
     Dates: start: 20040101, end: 20070101
  2. YASMIN [Suspect]
     Indication: ORAL CONTRACEPTION
     Dosage: UNK
     Route: 048
     Dates: start: 20040101, end: 20070101
  3. NAPROXEN [Concomitant]
     Dosage: UNK
     Dates: start: 20070101, end: 20080101
  4. UNCODEABLE ^UNCLASSIFIABLE^ [Concomitant]
  5. NEXIUM [Concomitant]

REACTIONS (8)
  - BILIARY DYSKINESIA [None]
  - NAUSEA [None]
  - GASTRITIS [None]
  - CHOLECYSTITIS CHRONIC [None]
  - EPIGASTRIC DISCOMFORT [None]
  - GALLBLADDER DISORDER [None]
  - ABDOMINAL PAIN UPPER [None]
  - ABDOMINAL DISTENSION [None]
